FAERS Safety Report 8450625 (Version 3)
Quarter: 2013Q2

REPORT INFORMATION
  Report Type: Spontaneous
  Country: US (occurrence: None)
  Receive Date: 20120229
  Receipt Date: 20120523
  Transmission Date: 20140414
  Serious: No
  Sender: FDA-Public Use
  Company Number: US-2011-10538

PATIENT
  Age: 61 Year
  Sex: Male
  Weight: 124.7 kg

DRUGS (5)
  1. SAMSCA [Suspect]
     Indication: YELLOW NAIL SYNDROME
     Dosage: 30 MG MILLIGRAM(S), QOD, ORAL 60 MG MILLIGRAM (S), QOD, ORAL
     Route: 048
     Dates: start: 20110727
  2. SAMSCA [Suspect]
     Indication: BLOOD SODIUM DECREASED
     Dosage: 30 MG MILLIGRAM(S), QOD, ORAL 60 MG MILLIGRAM (S), QOD, ORAL
     Route: 048
     Dates: start: 20110727
  3. BUMEX [Concomitant]
  4. ZAROXOLYN [Concomitant]
  5. POTASSIUM CHLORIDE [Concomitant]

REACTIONS (2)
  - LYMPHOEDEMA [None]
  - WEIGHT INCREASED [None]
